FAERS Safety Report 8139887-8 (Version None)
Quarter: 2012Q1

REPORT INFORMATION
  Report Type: 
  Country: None (occurrence: None)
  Receive Date: 20120215
  Receipt Date: 20120210
  Transmission Date: 20120608
  Serious: Yes (Death)
  Sender: FDA-Public Use
  Company Number: US-ASTRAZENECA-2001UW06110

PATIENT
  Age: 88 Year
  Sex: Female

DRUGS (2)
  1. NOLVADEX [Suspect]
     Indication: BREAST CANCER
     Route: 048
  2. NEXIUM [Suspect]
     Route: 048

REACTIONS (3)
  - THROMBOSIS [None]
  - DEATH [None]
  - ENDOMETRIAL HYPERTROPHY [None]
